FAERS Safety Report 5725412-5 (Version None)
Quarter: 2008Q2

REPORT INFORMATION
  Report Type: 
  Country: None (occurrence: None)
  Receive Date: 20080501
  Receipt Date: 20080423
  Transmission Date: 20081010
  Serious: Yes (Death, Hospitalization)
  Sender: FDA-Public Use
  Company Number: GB-PFIZER INC-2008032730

PATIENT
  Age: 62 Year
  Sex: Female
  Weight: 71 kg

DRUGS (7)
  1. CHAMPIX [Suspect]
     Indication: SMOKING CESSATION THERAPY
     Route: 048
  2. ERYTHROMYCIN [Concomitant]
     Route: 048
  3. LEVOCETIRIZINE [Concomitant]
     Route: 048
  4. MONTELUKAST SODIUM [Concomitant]
     Route: 048
  5. SERETIDE [Concomitant]
     Indication: CHRONIC OBSTRUCTIVE PULMONARY DISEASE
     Route: 055
  6. TIOTROPIUM BROMIDE [Concomitant]
     Route: 055
  7. VENTOLIN [Concomitant]
     Route: 055

REACTIONS (2)
  - HEADACHE [None]
  - SUBARACHNOID HAEMORRHAGE [None]
